FAERS Safety Report 14554047 (Version 1)
Quarter: 2018Q1

REPORT INFORMATION
  Report Type: Spontaneous
  Country: US (occurrence: US)
  Receive Date: 20180217
  Receipt Date: 20180217
  Transmission Date: 20180509
  Serious: No
  Sender: FDA-Public Use
  Company Number: None

PATIENT
  Age: 47 Year
  Sex: Male

DRUGS (1)
  1. EPCLUSA [Suspect]
     Active Substance: SOFOSBUVIR\VELPATASVIR
     Indication: HEPATITIS C
     Dosage: 400MG/100MG 1QD ORAL
     Route: 048
     Dates: start: 20180124

REACTIONS (4)
  - Myalgia [None]
  - Drug dose omission [None]
  - Hypoaesthesia [None]
  - Memory impairment [None]

NARRATIVE: CASE EVENT DATE: 20180127
